FAERS Safety Report 14016232 (Version 1)
Quarter: 2017Q3

REPORT INFORMATION
  Report Type: Spontaneous
  Country: US (occurrence: US)
  Receive Date: 20170927
  Receipt Date: 20170927
  Transmission Date: 20171128
  Serious: No
  Sender: FDA-Public Use
  Company Number: US-SA-2016SA194832

PATIENT
  Age: 30 Year
  Sex: Female

DRUGS (1)
  1. LEMTRADA [Suspect]
     Active Substance: ALEMTUZUMAB
     Indication: MULTIPLE SCLEROSIS
     Route: 041
     Dates: start: 2016, end: 2016

REACTIONS (4)
  - Headache [Unknown]
  - Heart rate decreased [Unknown]
  - Blood pressure increased [Unknown]
  - Pain in jaw [Unknown]

NARRATIVE: CASE EVENT DATE: 2016
